FAERS Safety Report 21651208 (Version 1)
Quarter: 2022Q4

REPORT INFORMATION
  Report Type: Spontaneous
  Country: US (occurrence: US)
  Receive Date: 20221128
  Receipt Date: 20221128
  Transmission Date: 20230112
  Serious: No
  Sender: FDA-Public Use
  Company Number: US-PFIZER INC-202201332372

PATIENT
  Age: 35 Year
  Sex: Female

DRUGS (11)
  1. XELJANZ [Suspect]
     Active Substance: TOFACITINIB CITRATE
     Dosage: 5 MG, 2X/DAY
     Dates: start: 20211123
  2. WELLBUTRIN [Concomitant]
     Active Substance: BUPROPION HYDROCHLORIDE
  3. CHONDROITIN/COLECALCIFEROL/GLUCOSAMINE [Concomitant]
  4. GINGER [Concomitant]
     Active Substance: GINGER
  5. VITAMIN D NOS [Concomitant]
     Active Substance: VITAMIN D NOS
  6. METHYLPREDNISOLONE [Concomitant]
     Active Substance: METHYLPREDNISOLONE
  7. HERBALS\TURMERIC [Concomitant]
     Active Substance: HERBALS\TURMERIC
  8. CYCLOBENZAPRINE [Concomitant]
     Active Substance: CYCLOBENZAPRINE
  9. TRAMADOL [Concomitant]
     Active Substance: TRAMADOL
  10. VYVANSE [Concomitant]
     Active Substance: LISDEXAMFETAMINE DIMESYLATE
  11. HERBALS [Concomitant]
     Active Substance: HERBALS

REACTIONS (1)
  - Illness [Unknown]
